FAERS Safety Report 7433964-2 (Version None)
Quarter: 2011Q2

REPORT INFORMATION
  Report Type: 
  Country: None (occurrence: None)
  Receive Date: 20110420
  Receipt Date: 20110420
  Transmission Date: 20111010
  Serious: Yes (Disabling)
  Sender: FDA-Public Use
  Company Number: None

PATIENT
  Age: 59 Year
  Sex: Female
  Weight: 70.3075 kg

DRUGS (2)
  1. TOBRAMYCIN-DEXAMETHASONE [Suspect]
     Indication: LACRIMATION INCREASED
     Dosage: 1 DROP EACH EYE 3 TIMES DAILY INTRAOCULAR
     Route: 031
     Dates: start: 20110330, end: 20110407
  2. TOBRAMYCIN-DEXAMETHASONE [Suspect]
     Indication: OCULAR HYPERAEMIA
     Dosage: 1 DROP EACH EYE 3 TIMES DAILY INTRAOCULAR
     Route: 031
     Dates: start: 20110330, end: 20110407

REACTIONS (1)
  - INTRAOCULAR PRESSURE INCREASED [None]
